FAERS Safety Report 8663377 (Version 10)
Quarter: 2014Q2

REPORT INFORMATION
  Report Type: Report from Study
  Country: DE (occurrence: DE)
  Receive Date: 20120713
  Receipt Date: 20140428
  Transmission Date: 20141212
  Serious: Yes (Hospitalization)
  Sender: FDA-Public Use
  Company Number: DE-UCBSA-061227

PATIENT
  Sex: Female
  Weight: 65 kg

DRUGS (8)
  1. CERTOLIZUMAB PEGOL [Suspect]
     Indication: RHEUMATOID ARTHRITIS
     Dosage: NO OF DOSES RECEIVED: 38
     Route: 058
     Dates: start: 20100611, end: 20111203
  2. CERTOLIZUMAB PEGOL [Suspect]
     Indication: RHEUMATOID ARTHRITIS
     Dosage: NO OF DOSES :42
     Route: 058
     Dates: start: 20120115
  3. ASS [Concomitant]
     Indication: RHEUMATOID ARTHRITIS
     Dates: start: 20010126
  4. ARCOXIA [Concomitant]
     Indication: RHEUMATOID ARTHRITIS
     Dates: start: 20050314
  5. SEVICAR [Concomitant]
     Indication: HYPERTENSION
     Dosage: 20 MG / 5 MG
     Route: 048
     Dates: start: 20100312
  6. AZULFIDINE [Concomitant]
     Indication: RHEUMATOID ARTHRITIS
     Route: 048
     Dates: start: 20110408
  7. SEVICAR [Concomitant]
     Indication: HYPERTENSION
     Dosage: 20 MG/5 MG
     Route: 048
     Dates: start: 20100312
  8. LEDERLON [Concomitant]
     Dosage: DOSE: 40 MG
     Route: 014
     Dates: start: 20110719

REACTIONS (2)
  - Sepsis [Recovered/Resolved]
  - Hyperthyroidism [Recovered/Resolved]
